FAERS Safety Report 15707035 (Version 2)
Quarter: 2018Q4

REPORT INFORMATION
  Report Type: Spontaneous
  Country: US (occurrence: US)
  Receive Date: 20181210
  Receipt Date: 20181211
  Transmission Date: 20190205
  Serious: Yes (Other)
  Sender: FDA-Public Use
  Company Number: US-CELGENEUS-USA-20181200057

PATIENT
  Sex: Female

DRUGS (2)
  1. OTEZLA [Suspect]
     Active Substance: APREMILAST
     Indication: PSORIATIC ARTHROPATHY
  2. OTEZLA [Suspect]
     Active Substance: APREMILAST
     Indication: PSORIASIS
     Dosage: 60 MILLIGRAM
     Route: 048
     Dates: start: 20171128, end: 20181114

REACTIONS (4)
  - Unevaluable event [Not Recovered/Not Resolved]
  - Breast cancer [Not Recovered/Not Resolved]
  - Rash [Not Recovered/Not Resolved]
  - Onychomycosis [Not Recovered/Not Resolved]
